FAERS Safety Report 6552484-0 (Version None)
Quarter: 2010Q1

REPORT INFORMATION
  Report Type: 
  Country: None (occurrence: None)
  Receive Date: 20100126
  Receipt Date: 20100120
  Transmission Date: 20100710
  Serious: Yes (Disabling)
  Sender: FDA-Public Use
  Company Number: US-MYLANLABS-2009S1021517

PATIENT
  Age: 39 Year
  Sex: Male
  Weight: 68.04 kg

DRUGS (4)
  1. FENTANYL CITRATE [Suspect]
     Indication: BONE PAIN
     Dosage: CHANGED Q72H
     Route: 062
     Dates: start: 20080101, end: 20091213
  2. NORCO [Concomitant]
     Indication: BONE PAIN
     Dosage: 10MG/325MG
     Route: 048
  3. LOTREL [Concomitant]
     Indication: BLOOD PRESSURE INCREASED
     Dosage: 5MG/20MG
     Route: 048
  4. ASPIRIN [Concomitant]
     Indication: MYOCARDIAL INFARCTION
     Route: 048

REACTIONS (5)
  - APPLICATION SITE ERYTHEMA [None]
  - APPLICATION SITE IRRITATION [None]
  - APPLICATION SITE PAIN [None]
  - APPLICATION SITE PRURITUS [None]
  - APPLICATION SITE RASH [None]
